FAERS Safety Report 10090588 (Version 1)
Quarter: 2014Q2

REPORT INFORMATION
  Report Type: Spontaneous
  Country: US (occurrence: US)
  Receive Date: 20140421
  Receipt Date: 20140421
  Transmission Date: 20141212
  Serious: No
  Sender: FDA-Public Use
  Company Number: US-009507513-1404USA011247

PATIENT
  Sex: Female

DRUGS (1)
  1. OXYTROL FOR WOMEN [Suspect]
     Indication: HYPERTONIC BLADDER
     Dosage: UNK, UNKNOWN
     Route: 062
     Dates: end: 20140402

REACTIONS (8)
  - Headache [Unknown]
  - Feeling abnormal [Not Recovered/Not Resolved]
  - Nervousness [Unknown]
  - Incontinence [Unknown]
  - Pain [Unknown]
  - Dizziness [Unknown]
  - Product adhesion issue [Unknown]
  - Product packaging issue [Unknown]
